FAERS Safety Report 18247183 (Version 3)
Quarter: 2020Q4

REPORT INFORMATION
  Report Type: Report from Study
  Country: None (occurrence: US)
  Receive Date: 20200909
  Receipt Date: 20201118
  Transmission Date: 20210113
  Serious: Yes (Hospitalization)
  Sender: FDA-Public Use
  Company Number: US-ABBVIE-20K-163-3432178-00

PATIENT
  Sex: Female
  Weight: 49.49 kg

DRUGS (4)
  1. HUMIRA [Suspect]
     Active Substance: ADALIMUMAB
     Indication: COLITIS ULCERATIVE
     Dosage: CITRATE FREE
     Route: 058
     Dates: start: 20190704
  2. ALEVE [Concomitant]
     Active Substance: NAPROXEN SODIUM
     Indication: PAIN
  3. HUMIRA [Suspect]
     Active Substance: ADALIMUMAB
     Indication: PSORIASIS
  4. LEXAPRO [Concomitant]
     Active Substance: ESCITALOPRAM OXALATE
     Indication: DEPRESSION

REACTIONS (14)
  - Spinal fracture [Recovered/Resolved]
  - Nausea [Not Recovered/Not Resolved]
  - Anal incontinence [Recovered/Resolved]
  - Back pain [Recovering/Resolving]
  - Myalgia [Recovering/Resolving]
  - Back pain [Recovered/Resolved]
  - Nerve compression [Recovered/Resolved]
  - Anal hypoaesthesia [Recovering/Resolving]
  - Diarrhoea [Recovered/Resolved]
  - Injection site erythema [Recovering/Resolving]
  - Spinal stenosis [Recovered/Resolved]
  - Fall [Recovered/Resolved]
  - Constipation [Recovering/Resolving]
  - Rash papular [Recovering/Resolving]

NARRATIVE: CASE EVENT DATE: 2019
